FAERS Safety Report 6428727-0 (Version None)
Quarter: 2009Q4

REPORT INFORMATION
  Report Type: 
  Country: None (occurrence: None)
  Receive Date: 20091027
  Receipt Date: 20091013
  Transmission Date: 20100525
  Serious: Yes (Death)
  Sender: FDA-Public Use
  Company Number: 2007332181

PATIENT
  Age: 4 Month
  Sex: Male

DRUGS (2)
  1. PSEUDOEPHEDRINE HCL [Suspect]
  2. EPHEDRINE SUL CAP [Suspect]

REACTIONS (1)
  - DEATH [None]
